FAERS Safety Report 18216054 (Version 1)
Quarter: 2020Q3

REPORT INFORMATION
  Report Type: Spontaneous
  Country: FI (occurrence: FI)
  Receive Date: 20200901
  Receipt Date: 20200901
  Transmission Date: 20201103
  Serious: Yes (Other)
  Sender: FDA-Public Use
  Company Number: FI-REGENERON PHARMACEUTICALS, INC.-2020-73227

PATIENT

DRUGS (1)
  1. LIBTAYO [Suspect]
     Active Substance: CEMIPLIMAB-RWLC
     Indication: SQUAMOUS CELL CARCINOMA
     Dosage: UNK

REACTIONS (5)
  - Ketoacidosis [Recovering/Resolving]
  - Hypothyroidism [Recovering/Resolving]
  - Diabetes mellitus [Recovering/Resolving]
  - Hyperthyroidism [Recovering/Resolving]
  - Liver disorder [Recovering/Resolving]
